FAERS Safety Report 6552581-X (Version None)
Quarter: 2010Q1

REPORT INFORMATION
  Report Type: 
  Country: None (occurrence: None)
  Receive Date: 20100126
  Receipt Date: 20100118
  Transmission Date: 20100710
  Serious: Yes (Hospitalization)
  Sender: FDA-Public Use
  Company Number: JP-SANOFI-AVENTIS-2010SA003141

PATIENT
  Age: 53 Year
  Sex: Female

DRUGS (5)
  1. ELPLAT [Suspect]
     Indication: LARGE INTESTINE CARCINOMA
     Route: 041
  2. AVASTIN [Suspect]
     Indication: LARGE INTESTINE CARCINOMA
     Route: 041
     Dates: start: 20081120, end: 20081120
  3. AVASTIN [Suspect]
     Route: 041
     Dates: start: 20091217, end: 20091217
  4. 5-FU [Suspect]
     Indication: LARGE INTESTINE CARCINOMA
     Route: 040
  5. CALCIUM LEVOFOLINATE [Suspect]
     Indication: LARGE INTESTINE CARCINOMA
     Route: 041

REACTIONS (1)
  - GASTROINTESTINAL PERFORATION [None]
